FAERS Safety Report 8306456-6 (Version None)
Quarter: 2012Q2

REPORT INFORMATION
  Report Type: 
  Country: None (occurrence: None)
  Receive Date: 20120424
  Receipt Date: 20120417
  Transmission Date: 20120825
  Serious: Yes (Disabling)
  Sender: FDA-Public Use
  Company Number: US-ACCORD-013126

PATIENT
  Age: 29 Year
  Sex: Male

DRUGS (3)
  1. ETOPOSIDE [Suspect]
     Indication: TESTICULAR GERM CELL CANCER
  2. BLEOMYCIN SULFATE [Suspect]
     Indication: TESTICULAR GERM CELL CANCER
  3. CISPLATIN [Suspect]
     Indication: TESTICULAR GERM CELL CANCER

REACTIONS (1)
  - INFERTILITY MALE [None]
